FAERS Safety Report 24849132 (Version 1)
Quarter: 2025Q1

REPORT INFORMATION
  Report Type: Spontaneous
  Country: KR (occurrence: KR)
  Receive Date: 20250116
  Receipt Date: 20250116
  Transmission Date: 20250409
  Serious: Yes (Other)
  Sender: ABBVIE
  Company Number: KR-LUNDBECK-DKLU4009107

PATIENT

DRUGS (3)
  1. LEXAPRO [Suspect]
     Active Substance: ESCITALOPRAM OXALATE
     Indication: Depression
     Dosage: OVERDOSE: 200MG OF ESCITALOPRAM
     Route: 048
     Dates: end: 2024
  2. SERTRALINE HYDROCHLORIDE [Suspect]
     Active Substance: SERTRALINE HYDROCHLORIDE
     Indication: Product used for unknown indication
     Dosage: 125 MILLIGRAM
     Route: 048
     Dates: start: 2024
  3. SERTRALINE HYDROCHLORIDE [Suspect]
     Active Substance: SERTRALINE HYDROCHLORIDE
     Indication: Product used for unknown indication
     Dosage: 100 MILLIGRAM
     Route: 048
     Dates: end: 2024

REACTIONS (7)
  - Epilepsy [Unknown]
  - Product administered to patient of inappropriate age [Unknown]
  - Overdose [Unknown]
  - Tremor [Unknown]
  - Insomnia [Unknown]
  - Lethargy [Unknown]
  - Somnolence [Recovered/Resolved]
